FAERS Safety Report 15813969 (Version 1)
Quarter: 2019Q1

REPORT INFORMATION
  Report Type: Spontaneous
  Country: US (occurrence: US)
  Receive Date: 20190111
  Receipt Date: 20190111
  Transmission Date: 20190417
  Serious: No
  Sender: FDA-Public Use
  Company Number: None

PATIENT
  Age: 54 Year
  Sex: Female
  Weight: 94.05 kg

DRUGS (1)
  1. IMVEXXY [Suspect]
     Active Substance: ESTRADIOL
     Indication: ATROPHIC VULVOVAGINITIS
     Dosage: ?          OTHER FREQUENCY:TWICE A WEEK;?
     Dates: start: 20181101, end: 20190111

REACTIONS (2)
  - Hot flush [None]
  - Nightmare [None]

NARRATIVE: CASE EVENT DATE: 20190111
